FAERS Safety Report 6736113-9 (Version None)
Quarter: 2010Q2

REPORT INFORMATION
  Report Type: 
  Country: None (occurrence: None)
  Receive Date: 20100521
  Receipt Date: 20100511
  Transmission Date: 20101027
  Serious: Yes (Hospitalization, Other)
  Sender: FDA-Public Use
  Company Number: US-PFIZER INC-2010059288

PATIENT
  Age: 7 Year
  Sex: Male

DRUGS (5)
  1. SILDENAFIL CITRATE [Suspect]
     Indication: PULMONARY HYPERTENSION
  2. DIGOXIN [Concomitant]
  3. FUROSEMIDE [Concomitant]
  4. ALDACTONE [Concomitant]
  5. POTASSIUM CHLORIDE [Concomitant]

REACTIONS (4)
  - ABNORMAL BEHAVIOUR [None]
  - IMPULSIVE BEHAVIOUR [None]
  - PSYCHOMOTOR HYPERACTIVITY [None]
  - PULMONARY OEDEMA [None]
